FAERS Safety Report 11698785 (Version 1)
Quarter: 2015Q4

REPORT INFORMATION
  Report Type: Spontaneous
  Country: KR (occurrence: KR)
  Receive Date: 20151104
  Receipt Date: 20151104
  Transmission Date: 20160304
  Serious: Yes (Other)
  Sender: FDA-Public Use
  Company Number: KR-BRISTOL-MYERS SQUIBB COMPANY-BMS-2015-073045

PATIENT
  Age: 46 Year
  Sex: Female

DRUGS (2)
  1. SUNVEPRA [Suspect]
     Active Substance: ASUNAPREVIR
     Indication: CHRONIC HEPATITIS C
     Dosage: 100 MG, BID
     Route: 048
  2. DACLATASVIR DIHYDROCHLORIDE [Suspect]
     Active Substance: DACLATASVIR DIHYDROCHLORIDE
     Indication: CHRONIC HEPATITIS C
     Dosage: 60 MG, QD
     Route: 048

REACTIONS (2)
  - Headache [Unknown]
  - Cataract [Unknown]
